FAERS Safety Report 7148886-4 (Version None)
Quarter: 2010Q4

REPORT INFORMATION
  Report Type: 
  Country: None (occurrence: None)
  Receive Date: 20101209
  Receipt Date: 20101124
  Transmission Date: 20110411
  Serious: Yes (Death)
  Sender: FDA-Public Use
  Company Number: IE-AMGEN-QUU443435

PATIENT

DRUGS (11)
  1. ENBREL [Suspect]
     Indication: RHEUMATOID ARTHRITIS
     Dosage: UNK UNK, UNK
  2. SULFASALAZINE [Concomitant]
     Dosage: 1.5 G, BID
  3. HYDROXYCHLOROQUINE [Concomitant]
     Dosage: 400 MG, QD
  4. LEVOTHYROXINE SODIUM [Concomitant]
     Dosage: 100 A?G, QD
  5. ALENDRONATE SODIUM [Concomitant]
     Dosage: 70 MG, QWK
  6. QUETIAPINE FUMARATE [Concomitant]
     Dosage: UNK UNK, UNK
  7. PANTOPRAZOLE [Concomitant]
     Dosage: 40 MG, QD
  8. VALDOXAN [Concomitant]
     Dosage: 50 MG, UNK
  9. RITUXIMAB [Concomitant]
     Dosage: 1000 MG, UNK
     Dates: start: 20091130
  10. RITUXIMAB [Concomitant]
     Dosage: 1000 MG, UNK
     Dates: start: 20100107
  11. PREDNISOLONE [Concomitant]
     Dosage: 15 MG, QD

REACTIONS (1)
  - COMPLETED SUICIDE [None]
